FAERS Safety Report 6447169-5 (Version None)
Quarter: 2009Q4

REPORT INFORMATION
  Report Type: 
  Country: None (occurrence: None)
  Receive Date: 20091119
  Receipt Date: 20091112
  Transmission Date: 20100525
  Serious: Yes (Other)
  Sender: FDA-Public Use
  Company Number: PL-PFIZER INC-2009291795

PATIENT
  Sex: Female

DRUGS (3)
  1. MEDROL [Suspect]
     Indication: RHEUMATOID ARTHRITIS
     Dosage: 4MG AND 2MG ALTERNATELY
     Route: 048
     Dates: start: 20090701
  2. ACENOCOUMAROL [Concomitant]
  3. METOPROLOL SUCCINATE [Concomitant]
     Dosage: 25 MG, 1X/DAY

REACTIONS (3)
  - HAEMARTHROSIS [None]
  - HAEMATOMA [None]
  - JOINT SWELLING [None]
